APPROVED DRUG PRODUCT: WAYRILZ
Active Ingredient: RILZABRUTINIB
Strength: 400MG
Dosage Form/Route: TABLET;ORAL
Application: N219685 | Product #001
Applicant: GENZYME CORP
Approved: Aug 29, 2025 | RLD: Yes | RS: Yes | Type: RX

PATENTS:
Patent 12178818 | Expires: Oct 13, 2040
Patent 9994576 | Expires: Sep 6, 2033
Patent 9994576 | Expires: Sep 6, 2033
Patent 9266895 | Expires: Sep 6, 2033
Patent 8940744 | Expires: Sep 6, 2033
Patent 11708370 | Expires: Feb 20, 2041
Patent 9580427 | Expires: Mar 1, 2033

EXCLUSIVITY:
Code: NCE | Date: Aug 29, 2030